FAERS Safety Report 14608565 (Version 4)
Quarter: 2018Q3

REPORT INFORMATION
  Report Type: Report from Study
  Country: US (occurrence: US)
  Receive Date: 20180307
  Receipt Date: 20180921
  Transmission Date: 20181010
  Serious: Yes (Death)
  Sender: FDA-Public Use
  Company Number: US-ROCHE-2084682

PATIENT
  Age: 63 Year
  Sex: Female
  Weight: 53.9 kg

DRUGS (8)
  1. ATEZOLIZUMAB. [Suspect]
     Active Substance: ATEZOLIZUMAB
     Indication: HER-2 POSITIVE BREAST CANCER
     Dosage: ATEZOLIZUMAB 1200 MILLIGRAMS (MG) ADMINISTERED VIA INTRAVENOUS (IV) INFUSION ON DAY 1 OF EVERY 21?DA
     Route: 042
     Dates: start: 20171214, end: 20180225
  2. CARBOPLATIN. [Suspect]
     Active Substance: CARBOPLATIN
     Indication: HER-2 POSITIVE BREAST CANCER
     Dosage: DATE OF LAST DOSE PRIOR TO DEATH: 15/FEB/2018
     Route: 042
     Dates: start: 20180125, end: 20180225
  3. TRASTUZUMAB. [Suspect]
     Active Substance: TRASTUZUMAB
     Indication: HER-2 POSITIVE BREAST CANCER
     Dosage: LOADING DOSE 160 MG
     Route: 042
     Dates: start: 20171214
  4. TRASTUZUMAB. [Suspect]
     Active Substance: TRASTUZUMAB
     Dosage: DATE OF LAST DOSE PRIOR TO DEATH: 15/FEB/2018?MAINTENANCE DOSE
     Route: 042
     Dates: start: 20180125, end: 20180225
  5. TRASTUZUMAB EMTANSINE [Suspect]
     Active Substance: ADO-TRASTUZUMAB EMTANSINE
     Indication: HER-2 POSITIVE BREAST CANCER
     Dosage: DATE OF LAST DOSE PRIOR TO DEATH: 04/JAN/2018
     Route: 042
     Dates: start: 20171214, end: 20180225
  6. DOCETAXEL. [Suspect]
     Active Substance: DOCETAXEL
     Indication: HER-2 POSITIVE BREAST CANCER
     Dosage: DATE OF LAST DOSE PRIOR TO DEATH: 15/FEB/2018
     Route: 042
     Dates: start: 20180125, end: 20180225
  7. PERTUZUMAB. [Suspect]
     Active Substance: PERTUZUMAB
     Indication: HER-2 POSITIVE BREAST CANCER
     Dosage: LOADING DOSE
     Route: 042
     Dates: start: 20171214
  8. PERTUZUMAB. [Suspect]
     Active Substance: PERTUZUMAB
     Dosage: DATE OF LAST DOSE PRIOR TO DEATH: 15/FEB/2018?MAINTENANCE DOSE
     Route: 042
     Dates: start: 20180125, end: 20180225

REACTIONS (1)
  - Death [Fatal]

NARRATIVE: CASE EVENT DATE: 20180225
